FAERS Safety Report 19143047 (Version 7)
Quarter: 2021Q4

REPORT INFORMATION
  Report Type: Spontaneous
  Country: IR (occurrence: IR)
  Receive Date: 20210415
  Receipt Date: 20211008
  Transmission Date: 20220303
  Serious: Yes (Hospitalization)
  Sender: FDA-Public Use
  Company Number: IR-BIOGEN-2021BI01001743

PATIENT
  Age: 42 Year
  Sex: Female
  Weight: 50 kg

DRUGS (5)
  1. TYSABRI [Suspect]
     Active Substance: NATALIZUMAB
     Indication: Multiple sclerosis
     Dosage: 15 INFUSIONS
     Route: 065
     Dates: start: 201810, end: 201911
  2. TYSABRI [Suspect]
     Active Substance: NATALIZUMAB
     Dosage: 5 INFUSIONS
     Route: 065
     Dates: start: 201911, end: 202006
  3. TYSABRI [Suspect]
     Active Substance: NATALIZUMAB
     Dosage: 3 INFUSIONS
     Route: 065
     Dates: start: 202006, end: 202012
  4. METHYLPREDNISOLONE [Concomitant]
     Active Substance: METHYLPREDNISOLONE
     Indication: Multiple sclerosis
     Route: 065
     Dates: start: 20210315
  5. RITUXIMAB [Concomitant]
     Active Substance: RITUXIMAB
     Indication: Multiple sclerosis
     Route: 065
     Dates: start: 202102

REACTIONS (2)
  - Progressive multifocal leukoencephalopathy [Recovered/Resolved with Sequelae]
  - Prescribed underdose [Recovered/Resolved]

NARRATIVE: CASE EVENT DATE: 20191101
